FAERS Safety Report 5739190-7 (Version None)
Quarter: 2008Q2

REPORT INFORMATION
  Report Type: 
  Country: None (occurrence: None)
  Receive Date: 20080515
  Receipt Date: 20080507
  Transmission Date: 20081010
  Serious: Yes (Other)
  Sender: FDA-Public Use
  Company Number: US-BAYER-200811775BCC

PATIENT
  Sex: Female
  Weight: 46 kg

DRUGS (1)
  1. ASPIRIN [Suspect]
     Indication: PAIN IN EXTREMITY
     Dosage: UNIT DOSE: 500 MG
     Route: 048

REACTIONS (1)
  - BLOOD PRESSURE INCREASED [None]
